FAERS Safety Report 23724021 (Version 4)
Quarter: 2025Q3

REPORT INFORMATION
  Report Type: Spontaneous
  Country: US (occurrence: US)
  Receive Date: 20240409
  Receipt Date: 20250910
  Transmission Date: 20251020
  Serious: No
  Sender: BRISTOL-MYERS SQUIBB COMPANY
  Company Number: US-BRISTOL-MYERS SQUIBB COMPANY-2024-056036

PATIENT
  Age: 67 Year
  Sex: Female

DRUGS (2)
  1. REVLIMID [Suspect]
     Active Substance: LENALIDOMIDE
     Indication: Plasma cell myeloma
     Dosage: 5MG
  2. REVLIMID [Suspect]
     Active Substance: LENALIDOMIDE

REACTIONS (2)
  - Diarrhoea [Not Recovered/Not Resolved]
  - Dry skin [Unknown]
